FAERS Safety Report 6380199-0 (Version None)
Quarter: 2009Q3

REPORT INFORMATION
  Report Type: 
  Country: None (occurrence: None)
  Receive Date: 20090929
  Receipt Date: 20090917
  Transmission Date: 20100115
  Serious: Yes (Hospitalization, Other)
  Sender: FDA-Public Use
  Company Number: US-JNJFOC-20090604015

PATIENT
  Sex: Female
  Weight: 85.6 kg

DRUGS (27)
  1. GOLIMUMAB [Suspect]
     Route: 058
     Dates: start: 20081125
  2. GOLIMUMAB [Suspect]
     Route: 058
     Dates: start: 20081125
  3. GOLIMUMAB [Suspect]
     Route: 058
     Dates: start: 20081125
  4. GOLIMUMAB [Suspect]
     Route: 058
     Dates: start: 20081125
  5. GOLIMUMAB [Suspect]
     Route: 058
     Dates: start: 20081125
  6. GOLIMUMAB [Suspect]
     Route: 058
     Dates: start: 20081125
  7. GOLIMUMAB [Suspect]
     Indication: RHEUMATOID ARTHRITIS
     Route: 058
     Dates: start: 20081125
  8. GOLIMUMAB [Suspect]
     Route: 042
     Dates: start: 20071004, end: 20080904
  9. GOLIMUMAB [Suspect]
     Route: 042
     Dates: start: 20071004, end: 20080904
  10. GOLIMUMAB [Suspect]
     Route: 042
     Dates: start: 20071004, end: 20080904
  11. GOLIMUMAB [Suspect]
     Route: 042
     Dates: start: 20071004, end: 20080904
  12. GOLIMUMAB [Suspect]
     Route: 042
     Dates: start: 20071004, end: 20080904
  13. PLACEBO [Suspect]
     Route: 042
  14. PLACEBO [Suspect]
     Route: 042
  15. PLACEBO [Suspect]
     Indication: RHEUMATOID ARTHRITIS
     Route: 042
  16. METHOTREXATE [Suspect]
     Indication: RHEUMATOID ARTHRITIS
     Route: 048
  17. METHOTREXATE [Concomitant]
     Route: 058
  18. METHOTREXATE [Concomitant]
     Route: 048
  19. ENALAPRIL MALEATE [Concomitant]
     Route: 048
  20. FOLIC ACID [Concomitant]
     Route: 048
  21. PREDNISONE TAB [Concomitant]
     Indication: RHEUMATOID ARTHRITIS
     Route: 048
  22. SIMVASTATIN [Concomitant]
     Route: 048
  23. TYLENOL [Concomitant]
     Route: 048
  24. TYLENOL (CAPLET) [Concomitant]
     Route: 048
  25. TYLENOL W/ CODEINE NO. 3 [Concomitant]
     Route: 048
  26. LORTAB [Concomitant]
     Route: 048
  27. PERIDEX [Concomitant]

REACTIONS (2)
  - THYROID CANCER [None]
  - TONGUE NEOPLASM MALIGNANT STAGE UNSPECIFIED [None]
